FAERS Safety Report 4576252-4 (Version None)
Quarter: 2005Q1

REPORT INFORMATION
  Report Type: 
  Country: None (occurrence: None)
  Receive Date: 20050207
  Receipt Date: 20050120
  Transmission Date: 20050727
  Serious: Yes (Hospitalization)
  Sender: FDA-Public Use
  Company Number: DSA_25708_2005

PATIENT
  Age: 32 Year
  Sex: Female

DRUGS (8)
  1. TAVOR [Suspect]
     Dosage: 5.5 MG ONCE PO
     Route: 048
     Dates: start: 20050117, end: 20050117
  2. TAVOR [Suspect]
     Dosage: 8 MG ONCE PO
     Route: 048
     Dates: start: 20050117, end: 20050117
  3. AMINEURIN [Suspect]
     Dosage: 150 MG ONCE PO
     Route: 048
     Dates: start: 20050117, end: 20050117
  4. CHLORAL HYDRATE [Suspect]
     Dosage: 5000 MG ONCE PO
     Route: 048
     Dates: start: 20050117, end: 20050117
  5. FLUOXETINE HYDROCHLORIDE [Suspect]
     Dosage: 140 MG ONCE PO
     Route: 048
     Dates: start: 20050117, end: 20050117
  6. HYPNOREX - SLOW RELEASE [Suspect]
     Dosage: 18000 MG ONC EPO
     Route: 048
     Dates: start: 20050117, end: 20050117
  7. TRAMAL [Suspect]
     Dosage: 8 TAB ONCE PO
     Route: 048
     Dates: start: 20050117, end: 20050117
  8. ZOLPIDEM TARTRATE [Suspect]
     Dosage: 130 MG ONCE PO
     Route: 048
     Dates: start: 20050117, end: 20050117

REACTIONS (12)
  - ACTIVATED PARTIAL THROMBOPLASTIN TIME PROLONGED [None]
  - ALANINE AMINOTRANSFERASE INCREASED [None]
  - ASPARTATE AMINOTRANSFERASE INCREASED [None]
  - BLOOD AMYLASE INCREASED [None]
  - BLOOD CHLORIDE INCREASED [None]
  - BLOOD CREATINE PHOSPHOKINASE INCREASED [None]
  - BLOOD FIBRINOGEN INCREASED [None]
  - C-REACTIVE PROTEIN INCREASED [None]
  - COMA [None]
  - DIARRHOEA [None]
  - GAMMA-GLUTAMYLTRANSFERASE INCREASED [None]
  - OVERDOSE [None]
